FAERS Safety Report 19221247 (Version 4)
Quarter: 2021Q2

REPORT INFORMATION
  Report Type: Spontaneous
  Country: US (occurrence: US)
  Receive Date: 20210506
  Receipt Date: 20210623
  Transmission Date: 20210717
  Serious: No
  Sender: FDA-Public Use
  Company Number: US-ORGANON-O2104USA002201

PATIENT
  Sex: Female
  Weight: 46.71 kg

DRUGS (1)
  1. NEXPLANON [Suspect]
     Active Substance: ETONOGESTREL
     Dosage: 1 IMPLANT (68 MG) EVERY 3 YEARS (IN RIGHT UPPER ARM)
     Route: 058
     Dates: start: 20201012, end: 20210420

REACTIONS (2)
  - Device breakage [Recovered/Resolved]
  - No adverse event [Unknown]
